FAERS Safety Report 7001463-8 (Version None)
Quarter: 2010Q3

REPORT INFORMATION
  Report Type: 
  Country: None (occurrence: None)
  Receive Date: 20100920
  Receipt Date: 20091204
  Transmission Date: 20110219
  Serious: Yes (Other)
  Sender: FDA-Public Use
  Company Number: US-ASTRAZENECA-2009SE30291

PATIENT
  Age: 66 Year
  Sex: Male
  Weight: 106.6 kg

DRUGS (15)
  1. SEROQUEL [Suspect]
     Indication: BIPOLAR DISORDER
     Dosage: 50-75 MG AT NIGHT
     Route: 048
     Dates: start: 20010101, end: 20091001
  2. SEROQUEL [Suspect]
     Indication: INSOMNIA
     Dosage: 50-75 MG AT NIGHT
     Route: 048
     Dates: start: 20010101, end: 20091001
  3. SEROQUEL [Suspect]
     Route: 048
     Dates: start: 20091001, end: 20091001
  4. SEROQUEL [Suspect]
     Route: 048
     Dates: start: 20091001, end: 20091001
  5. SEROQUEL [Suspect]
     Dosage: 50-75 MG AT NIGHT
     Route: 048
     Dates: start: 20091001
  6. SEROQUEL [Suspect]
     Dosage: 50-75 MG AT NIGHT
     Route: 048
     Dates: start: 20091001
  7. ATENOLOL [Concomitant]
  8. LITHIUM [Concomitant]
  9. TRAVATAN Z [Concomitant]
  10. COSOPT [Concomitant]
  11. CARDURA [Concomitant]
  12. SYNTHROID [Concomitant]
  13. HIPREX [Concomitant]
  14. MELOXICAM [Concomitant]
  15. ASPIRIN [Concomitant]

REACTIONS (9)
  - ARTHRALGIA [None]
  - ARTHRITIS [None]
  - BLOOD TRIGLYCERIDES INCREASED [None]
  - CATARACT [None]
  - DEPRESSED MOOD [None]
  - GLAUCOMA [None]
  - HANGOVER [None]
  - HYPERSOMNIA [None]
  - URINARY TRACT INFECTION PSEUDOMONAL [None]
